FAERS Safety Report 10075651 (Version 2)
Quarter: 2014Q2

REPORT INFORMATION
  Report Type: Spontaneous
  Country: ES (occurrence: ES)
  Receive Date: 20140414
  Receipt Date: 20140414
  Transmission Date: 20141212
  Serious: Yes (Hospitalization)
  Sender: FDA-Public Use
  Company Number: ES-JNJFOC-20140316908

PATIENT
  Age: 74 Year
  Sex: Male

DRUGS (7)
  1. XARELTO [Suspect]
     Indication: CEREBROVASCULAR ACCIDENT PROPHYLAXIS
     Route: 048
     Dates: start: 20140303, end: 20140318
  2. XARELTO [Suspect]
     Indication: ATRIAL FIBRILLATION
     Route: 048
     Dates: start: 20140303, end: 20140318
  3. BISOPROLOL [Concomitant]
     Indication: HYPERTENSION
     Route: 048
  4. TOPIRAMATE [Concomitant]
     Route: 048
  5. CLOBAZAM [Concomitant]
     Route: 048
  6. LEVOBUNOLOL [Concomitant]
     Route: 047
  7. DESVENLAFAXINE [Concomitant]
     Route: 048

REACTIONS (3)
  - Eyelid ptosis [Not Recovered/Not Resolved]
  - Mydriasis [Not Recovered/Not Resolved]
  - Cerebral haemorrhage [Recovering/Resolving]
